FAERS Safety Report 25917189 (Version 1)
Quarter: 2025Q4

REPORT INFORMATION
  Report Type: Spontaneous
  Country: EU (occurrence: EU)
  Receive Date: 20251014
  Receipt Date: 20251014
  Transmission Date: 20260118
  Serious: Yes (Hospitalization, Other)
  Sender: MERCK SHARP & DOHME LLC
  Company Number: None

PATIENT
  Age: 66 Year
  Sex: Female
  Weight: 60 kg

DRUGS (8)
  1. KEYTRUDA [Suspect]
     Active Substance: PEMBROLIZUMAB
     Indication: Bladder neoplasm
     Route: 042
     Dates: start: 20241128, end: 20250911
  2. RYALTRIS 25MCG+600MCG [Concomitant]
     Dosage: TOTAL DOSE: 625MCG, 2 SPRAYS (DOSES) INTO EACH NOSTRIL TWICE A DAY
     Route: 045
  3. OPATANOL 1MG/ML [Concomitant]
     Dosage: 1-2 TIMES PER DAY
  4. Controloc 40mg [Concomitant]
     Route: 048
  5. SERETIDE DISKUS 50MCG+100MCG [Concomitant]
     Dosage: TOTAL DOSE: 150MCG
  6. AUGMENTIN [Suspect]
     Active Substance: AMOXICILLIN\CLAVULANATE POTASSIUM
     Indication: Bronchitis
     Dosage: TOTAL DOSE: 1G
     Route: 048
     Dates: start: 20250902, end: 20250908
  7. ACIDUM FOLICUM 10MG [Concomitant]
     Dosage: 3 TIMES PER WEEK
  8. DASSELTA 5MG [Concomitant]

REACTIONS (7)
  - Throat tightness [Recovering/Resolving]
  - Dyspnoea [Recovering/Resolving]
  - Swelling face [Recovering/Resolving]
  - Abdominal pain lower [Recovering/Resolving]
  - Body temperature increased [Recovering/Resolving]
  - Chills [Recovering/Resolving]
  - Drug eruption [Recovering/Resolving]

NARRATIVE: CASE EVENT DATE: 20250911
